FAERS Safety Report 7480086-0 (Version None)
Quarter: 2011Q2

REPORT INFORMATION
  Report Type: 
  Country: None (occurrence: None)
  Receive Date: 20110516
  Receipt Date: 20110506
  Transmission Date: 20111010
  Serious: No
  Sender: FDA-Public Use
  Company Number: US-BIOGENIDEC-2011BI015831

PATIENT
  Age: 50 Year
  Sex: Female

DRUGS (1)
  1. TYSABRI [Suspect]
     Indication: MULTIPLE SCLEROSIS
     Route: 042
     Dates: start: 20100723

REACTIONS (9)
  - MUSCULAR WEAKNESS [None]
  - BALANCE DISORDER [None]
  - DYSSTASIA [None]
  - URINARY INCONTINENCE [None]
  - COORDINATION ABNORMAL [None]
  - STRESS [None]
  - ASTHENIA [None]
  - TREMOR [None]
  - READING DISORDER [None]
